FAERS Safety Report 5219048-2 (Version None)
Quarter: 2007Q1

REPORT INFORMATION
  Report Type: 
  Country: None (occurrence: None)
  Receive Date: 20070124
  Receipt Date: 20070124
  Transmission Date: 20070707
  Serious: Yes (Life-Threatening)
  Sender: FDA-Public Use
  Company Number: None

PATIENT
  Age: 70 Year
  Sex: Female

DRUGS (1)
  1. PROMETHAZINE [Suspect]
     Dosage: 25MG

REACTIONS (2)
  - CARDIO-RESPIRATORY ARREST [None]
  - CONVULSION [None]
